FAERS Safety Report 11720206 (Version 2)
Quarter: 2015Q4

REPORT INFORMATION
  Report Type: Spontaneous
  Country: US (occurrence: US)
  Receive Date: 20151110
  Receipt Date: 20151207
  Transmission Date: 20160304
  Serious: No
  Sender: FDA-Public Use
  Company Number: US-009507513-1510USA010194

PATIENT
  Sex: Female

DRUGS (2)
  1. NEXPLANON [Suspect]
     Active Substance: ETONOGESTREL
     Dosage: 68 UNK, UNK
     Route: 059
     Dates: start: 20151020
  2. NEXPLANON [Suspect]
     Active Substance: ETONOGESTREL
     Indication: CONTRACEPTION
     Dosage: 68 MG, UNK
     Route: 059
     Dates: start: 201501, end: 20151020

REACTIONS (2)
  - Device kink [Recovered/Resolved]
  - Medical device site discomfort [Recovered/Resolved]

NARRATIVE: CASE EVENT DATE: 2015
